FAERS Safety Report 24755129 (Version 1)
Quarter: 2024Q4

REPORT INFORMATION
  Report Type: Spontaneous
  Country: US (occurrence: US)
  Receive Date: 20241219
  Receipt Date: 20241219
  Transmission Date: 20250114
  Serious: No
  Sender: STALLERGENES
  Company Number: US-STALCOR-2024-AER-02960

PATIENT
  Age: 40 Year
  Sex: Male
  Weight: 113.4 kg

DRUGS (8)
  1. NUMBER SEVEN TREE MIXTURE [Suspect]
     Active Substance: ACER RUBRUM POLLEN\ACER SACCHARINUM POLLEN\ACER SACCHARUM POLLEN\BETULA NIGRA POLLEN\CARYA ILLINOINE
     Indication: Rhinitis allergic
     Route: 058
  2. ALLERGENIC EXTRACT- GRASS [Suspect]
     Active Substance: ALLERGENIC EXTRACT- GRASS
     Indication: Rhinitis allergic
     Route: 058
  3. RAGWEED MIXTURE [Suspect]
     Active Substance: AMBROSIA ARTEMISIIFOLIA POLLEN\AMBROSIA BIDENTATA POLLEN\AMBROSIA PSILOSTACHYA POLLEN\AMBROSIA TRIFI
     Indication: Rhinitis allergic
     Route: 058
  4. CAT HAIR [Suspect]
     Active Substance: FELIS CATUS HAIR
     Indication: Rhinitis allergic
     Route: 058
  5. DOG EPITHELIA [Suspect]
     Active Substance: CANIS LUPUS FAMILIARIS SKIN
     Indication: Rhinitis allergic
     Route: 058
  6. STERILE DILUENT FOR ALLERGENIC EXTRACT (ALBUMIN (HUMAN)\PHENOL) [Suspect]
     Active Substance: ALBUMIN HUMAN\PHENOL
     Indication: Rhinitis allergic
     Route: 058
  7. FLONASE [Concomitant]
     Active Substance: FLUTICASONE PROPIONATE
     Indication: Product used for unknown indication
  8. ZYRTEC [Concomitant]
     Active Substance: CETIRIZINE HYDROCHLORIDE
     Indication: Product used for unknown indication

REACTIONS (1)
  - Pruritus [Recovered/Resolved]

NARRATIVE: CASE EVENT DATE: 20240725
